FAERS Safety Report 7720601-2 (Version None)
Quarter: 2011Q3

REPORT INFORMATION
  Report Type: 
  Country: None (occurrence: None)
  Receive Date: 20110831
  Receipt Date: 20110817
  Transmission Date: 20111222
  Serious: Yes (Hospitalization, Other)
  Sender: FDA-Public Use
  Company Number: US-ELI_LILLY_AND_COMPANY-US201007001782

PATIENT
  Sex: Female
  Weight: 69.388 kg

DRUGS (10)
  1. CITALOPRAM [Concomitant]
  2. ASPIRIN [Concomitant]
     Dosage: 81 MG, UNK
  3. PRIMIDONE [Concomitant]
  4. VITAMIN D [Concomitant]
  5. FORTEO [Suspect]
     Indication: OSTEOPOROSIS
     Dosage: 20 UG, DAILY (1/D)
     Route: 058
     Dates: start: 20100204
  6. AMLODIPINE [Concomitant]
  7. FORTEO [Suspect]
     Dosage: 20 UG, QD
     Route: 058
  8. PRAVASTATIN [Concomitant]
  9. BISPHOSPHONATES [Concomitant]
     Route: 048
  10. CALCIUM CARBONATE [Concomitant]

REACTIONS (3)
  - FEMUR FRACTURE [None]
  - FALL [None]
  - ATRIAL FIBRILLATION [None]
